FAERS Safety Report 4386597-9 (Version None)
Quarter: 2004Q2

REPORT INFORMATION
  Report Type: 
  Country: None (occurrence: None)
  Receive Date: 20040623
  Receipt Date: 20040608
  Transmission Date: 20050107
  Serious: Yes (Death, Life-Threatening)
  Sender: FDA-Public Use
  Company Number: EWC040639590

PATIENT
  Age: 76 Year
  Sex: Male

DRUGS (9)
  1. XIGRIS [Suspect]
     Dosage: 24 UG/KG/HR
     Dates: start: 20040511, end: 20040511
  2. DOBUTAMINE [Concomitant]
  3. PROPAFENONE HYDROCHLORIDE [Concomitant]
  4. INSULIN HUMAN [Concomitant]
  5. TEICOPLANIN [Concomitant]
  6. CIPROFLOXACIN [Concomitant]
  7. ALBUMIN (HUMAN) [Concomitant]
  8. DIGOXIN [Concomitant]
  9. PHYTONADIONE [Concomitant]

REACTIONS (3)
  - MULTI-ORGAN FAILURE [None]
  - SEPSIS [None]
  - SHOCK [None]
